FAERS Safety Report 13303185 (Version 2)
Quarter: 2017Q1

REPORT INFORMATION
  Report Type: Spontaneous
  Country: US (occurrence: US)
  Receive Date: 20170307
  Receipt Date: 20170330
  Transmission Date: 20170428
  Serious: Yes (Hospitalization, Other)
  Sender: FDA-Public Use
  Company Number: US-TEVA-745500USA

PATIENT
  Age: 58 Year
  Sex: Female

DRUGS (13)
  1. COMPAZINE [Suspect]
     Active Substance: PROCHLORPERAZINE MALEATE
     Route: 065
  2. XIFAXAN [Concomitant]
     Active Substance: RIFAXIMIN
     Route: 065
  3. NADOLOL. [Concomitant]
     Active Substance: NADOLOL
     Route: 065
  4. OXYCODONE [Concomitant]
     Active Substance: OXYCODONE
     Route: 065
  5. ALPRAZOLAM. [Concomitant]
     Active Substance: ALPRAZOLAM
     Route: 065
  6. PRAVASTATIN. [Concomitant]
     Active Substance: PRAVASTATIN
     Route: 065
  7. LACTULOSE. [Concomitant]
     Active Substance: LACTULOSE
     Route: 065
  8. FLUCONAZOLE. [Suspect]
     Active Substance: FLUCONAZOLE
     Indication: FUNGAL INFECTION
     Route: 065
  9. PROTONIX [Concomitant]
     Active Substance: PANTOPRAZOLE SODIUM
     Route: 065
  10. PROGRAF [Interacting]
     Active Substance: TACROLIMUS\TACROLIMUS ANHYDROUS
     Indication: IMMUNOSUPPRESSION
     Dosage: 1 MILLIGRAM DAILY;
     Route: 048
     Dates: start: 201009
  11. ZOFRAN [Concomitant]
     Active Substance: ONDANSETRON HYDROCHLORIDE
     Route: 065
  12. ASA [Concomitant]
     Active Substance: ASPIRIN
     Route: 065
  13. MAGNESIUM OXIDE. [Concomitant]
     Active Substance: MAGNESIUM OXIDE
     Route: 065

REACTIONS (18)
  - Electrocardiogram QT prolonged [Recovered/Resolved]
  - Blood potassium decreased [Recovered/Resolved]
  - Pneumonia aspiration [Unknown]
  - Myocardial necrosis marker increased [Recovered/Resolved]
  - Blood creatinine increased [Recovered/Resolved]
  - Myocardial infarction [Recovered/Resolved]
  - Drug interaction [Unknown]
  - Blood magnesium decreased [Recovered/Resolved]
  - Fluid overload [Recovered/Resolved]
  - Respiratory arrest [Recovered/Resolved]
  - Decubitus ulcer [Unknown]
  - Blood sodium decreased [Recovered/Resolved]
  - Tardive dyskinesia [Recovered/Resolved]
  - Dry mouth [Not Recovered/Not Resolved]
  - Cough [Unknown]
  - Hypertension [Unknown]
  - Aspiration [Unknown]
  - Pneumothorax [Unknown]

NARRATIVE: CASE EVENT DATE: 201612
